FAERS Safety Report 4853567-3 (Version None)
Quarter: 2005Q4

REPORT INFORMATION
  Report Type: 
  Country: None (occurrence: None)
  Receive Date: 20051214
  Receipt Date: 20051128
  Transmission Date: 20060501
  Serious: Yes (Hospitalization)
  Sender: FDA-Public Use
  Company Number: PHBS2005TH17411

PATIENT
  Age: 13 Year
  Sex: Female
  Weight: 27.5 kg

DRUGS (2)
  1. ELIDEL [Suspect]
     Indication: VITILIGO
     Dosage: UNK, UNK
     Route: 061
     Dates: start: 20050601
  2. ARISTOCORT [Concomitant]
     Indication: ECZEMA
     Route: 061

REACTIONS (9)
  - ALANINE AMINOTRANSFERASE INCREASED [None]
  - ASPARTATE AMINOTRANSFERASE INCREASED [None]
  - BILIRUBIN CONJUGATED INCREASED [None]
  - BLOOD ALKALINE PHOSPHATASE INCREASED [None]
  - BLOOD BILIRUBIN INCREASED [None]
  - BLOOD LACTATE DEHYDROGENASE INCREASED [None]
  - DRUG LEVEL INCREASED [None]
  - HEPATITIS INFECTIOUS [None]
  - PYREXIA [None]
